FAERS Safety Report 8600433 (Version 4)
Quarter: 2012Q4

REPORT INFORMATION
  Report Type: 
  Country: FR (occurrence: FR)
  Receive Date: 20120606
  Receipt Date: 20121008
  Transmission Date: 20130627
  Serious: Yes (Other)
  Sender: FDA-Public Use
  Company Number: FR-US-EMD SERONO, INC.-7124861

PATIENT
  Age: 37 Year
  Sex: Male
  Weight: 78 kg

DRUGS (3)
  1. REBIF [Suspect]
     Indication: MULTIPLE SCLEROSIS
     Route: 058
     Dates: start: 20111012, end: 20120406
  2. VITAMIN D [Concomitant]
     Indication: VITAMIN D DEFICIENCY
     Route: 048
  3. VITAMIN D [Concomitant]
     Route: 048

REACTIONS (2)
  - Autoimmune thyroiditis [Unknown]
  - Blood thyroid stimulating hormone increased [Recovering/Resolving]
